FAERS Safety Report 22523554 (Version 1)
Quarter: 2023Q2

REPORT INFORMATION
  Report Type: Report from Study
  Country: CA (occurrence: CA)
  Receive Date: 20230606
  Receipt Date: 20230606
  Transmission Date: 20230722
  Serious: No
  Sender: FDA-Public Use
  Company Number: CA-JNJFOC-20230602705

PATIENT
  Age: 45 Year
  Sex: Female
  Weight: 107 kg

DRUGS (1)
  1. REMICADE [Suspect]
     Active Substance: INFLIXIMAB
     Indication: Crohn^s disease
     Route: 042
     Dates: start: 20230417

REACTIONS (5)
  - Oral herpes [Not Recovered/Not Resolved]
  - Dysphonia [Unknown]
  - Pharyngeal paraesthesia [Unknown]
  - Oral neoplasm [Unknown]
  - Oropharyngeal discomfort [Unknown]
